FAERS Safety Report 16123188 (Version 1)
Quarter: 2019Q1

REPORT INFORMATION
  Report Type: Spontaneous
  Country: US (occurrence: US)
  Receive Date: 20190222
  Receipt Date: 20190222
  Transmission Date: 20190418
  Serious: No
  Sender: FDA-Public Use
  Company Number: None

PATIENT
  Age: 6 Year
  Sex: Male

DRUGS (1)
  1. MEKINIST [Suspect]
     Active Substance: TRAMETINIB DIMETHYL SULFOXIDE
     Indication: NERVOUS SYSTEM NEOPLASM BENIGN
     Route: 048
     Dates: start: 201901

REACTIONS (2)
  - Product dose omission [None]
  - Product storage error [None]

NARRATIVE: CASE EVENT DATE: 20190222
